FAERS Safety Report 5339127-9 (Version None)
Quarter: 2007Q2

REPORT INFORMATION
  Report Type: 
  Country: None (occurrence: None)
  Receive Date: 20070330
  Receipt Date: 20060824
  Transmission Date: 20071010
  Serious: Yes (Hospitalization)
  Sender: FDA-Public Use
  Company Number: 2006EN000159

PATIENT
  Age: 2 Year
  Sex: Female
  Weight: 16.4 kg

DRUGS (4)
  1. ONCASPAR [Suspect]
     Indication: B PRECURSOR TYPE ACUTE LEUKAEMIA
     Dosage: 1700 IU, IM
     Route: 030
     Dates: start: 20060626, end: 20060817
  2. METHOTREXATE [Concomitant]
  3. 6-MP [Concomitant]
  4. VINCRISTINE [Concomitant]

REACTIONS (1)
  - HYPERAMMONAEMIA [None]
